FAERS Safety Report 5165071-6 (Version None)
Quarter: 2006Q4

REPORT INFORMATION
  Report Type: 
  Country: None (occurrence: None)
  Receive Date: 20061124
  Receipt Date: 20060718
  Transmission Date: 20070319
  Serious: Yes (Other)
  Sender: FDA-Public Use
  Company Number: 2006084206

PATIENT
  Age: 62 Year
  Sex: Male

DRUGS (2)
  1. VIAGRA [Suspect]
     Indication: ERECTILE DYSFUNCTION
     Dosage: (50 MG, 1 AS NECESSARY), ORAL
     Route: 048
  2. SIMVASTATIN [Concomitant]

REACTIONS (3)
  - EYE DISCHARGE [None]
  - EYE PRURITUS [None]
  - VISUAL ACUITY REDUCED [None]
